FAERS Safety Report 7510523-4 (Version None)
Quarter: 2011Q2

REPORT INFORMATION
  Report Type: 
  Country: None (occurrence: None)
  Receive Date: 20110530
  Receipt Date: 20110519
  Transmission Date: 20111010
  Serious: Yes (Hospitalization)
  Sender: FDA-Public Use
  Company Number: US-BIOGENIDEC-2010BI010372

PATIENT
  Age: 45 Year
  Sex: Female

DRUGS (2)
  1. AVONEX [Concomitant]
     Indication: MULTIPLE SCLEROSIS
     Route: 030
  2. TYSABRI [Suspect]
     Indication: MULTIPLE SCLEROSIS
     Route: 042
     Dates: start: 20061025, end: 20110430

REACTIONS (10)
  - SENSORY DISTURBANCE [None]
  - FEELING HOT [None]
  - INJURY [None]
  - COLLAPSE OF LUNG [None]
  - VERTIGO [None]
  - POOR VENOUS ACCESS [None]
  - FIBROMYALGIA [None]
  - MEMORY IMPAIRMENT [None]
  - BURSITIS [None]
  - ARTHRALGIA [None]
